FAERS Safety Report 19176266 (Version 1)
Quarter: 2021Q2

REPORT INFORMATION
  Report Type: Spontaneous
  Country: US (occurrence: US)
  Receive Date: 20210423
  Receipt Date: 20210423
  Transmission Date: 20210717
  Serious: No
  Sender: FDA-Public Use
  Company Number: 2021SGN00045

PATIENT
  Age: 33 Year
  Sex: Female

DRUGS (8)
  1. ABILIFY [Concomitant]
     Active Substance: ARIPIPRAZOLE
  2. METOPROLOL. [Concomitant]
     Active Substance: METOPROLOL
  3. TRASTUZUMAB. [Concomitant]
     Active Substance: TRASTUZUMAB
  4. TUKYSA [Suspect]
     Active Substance: TUCATINIB
     Dosage: 150 MG, BID
     Route: 048
     Dates: start: 20201115
  5. ONDANSETRON [Concomitant]
     Active Substance: ONDANSETRON
  6. CAPECITABINE. [Concomitant]
     Active Substance: CAPECITABINE
  7. FAMOTIDINE. [Concomitant]
     Active Substance: FAMOTIDINE
  8. TUKYSA [Suspect]
     Active Substance: TUCATINIB
     Indication: BREAST CANCER METASTATIC
     Dosage: 300 MG, BID
     Route: 048
     Dates: start: 20200919, end: 20201103

REACTIONS (5)
  - Transaminases increased [Recovering/Resolving]
  - Treatment noncompliance [Unknown]
  - Paronychia [Recovering/Resolving]
  - Cardiomyopathy [Recovering/Resolving]
  - Ejection fraction decreased [Recovering/Resolving]

NARRATIVE: CASE EVENT DATE: 20201101
